FAERS Safety Report 9442720 (Version 1)
Quarter: 2013Q3

REPORT INFORMATION
  Report Type: Spontaneous
  Country: US (occurrence: None)
  Receive Date: 20130805
  Receipt Date: 20130805
  Transmission Date: 20140515
  Serious: No
  Sender: FDA-Public Use
  Company Number: None

PATIENT
  Age: 58 Year
  Sex: Male

DRUGS (6)
  1. REVLIMID [Suspect]
     Indication: PLASMA CELL MYELOMA
  2. VELCADE [Suspect]
     Indication: PLASMA CELL MYELOMA
  3. DEXAMETHASONE [Suspect]
     Indication: PLASMA CELL MYELOMA
  4. CYTOXAN [Suspect]
     Indication: PLASMA CELL MYELOMA
  5. MELPHALAN [Suspect]
     Indication: PLASMA CELL MYELOMA
  6. ZOMETA [Concomitant]

REACTIONS (3)
  - Fatigue [None]
  - Arthralgia [None]
  - Muscle spasms [None]
